FAERS Safety Report 18447034 (Version 1)
Quarter: 2020Q4

REPORT INFORMATION
  Report Type: Spontaneous
  Country: US (occurrence: US)
  Receive Date: 20201030
  Receipt Date: 20201030
  Transmission Date: 20210114
  Serious: Yes (Life-Threatening, Other)
  Sender: FDA-Public Use
  Company Number: None

PATIENT
  Age: 69 Year
  Sex: Female
  Weight: 95.25 kg

DRUGS (2)
  1. ANASTROZOLE 1MG [Suspect]
     Active Substance: ANASTROZOLE
  2. LETROZOLE 2.5MG TABLETS [Suspect]
     Active Substance: LETROZOLE
     Indication: BREAST CANCER
     Dates: start: 20191202

REACTIONS (18)
  - Abdominal pain upper [None]
  - Fatigue [None]
  - Dialysis [None]
  - Bladder pain [None]
  - Paraesthesia [None]
  - Cystitis radiation [None]
  - Gastrointestinal toxicity [None]
  - Vision blurred [None]
  - Hot flush [None]
  - Asthenia [None]
  - Loss of consciousness [None]
  - Vaginal haemorrhage [None]
  - Urine output decreased [None]
  - Impaired driving ability [None]
  - Vomiting [None]
  - Bone pain [None]
  - Pelvic pain [None]
  - Anorectal discomfort [None]

NARRATIVE: CASE EVENT DATE: 20191202
